FAERS Safety Report 13160054 (Version 10)
Quarter: 2019Q3

REPORT INFORMATION
  Report Type: Spontaneous
  Country: US (occurrence: US)
  Receive Date: 20170127
  Receipt Date: 20190722
  Transmission Date: 20191004
  Serious: Yes (Hospitalization, Other)
  Sender: FDA-Public Use
  Company Number: US-PFIZER INC-2017034817

PATIENT
  Age: 39 Year
  Sex: Male
  Weight: 73 kg

DRUGS (19)
  1. GENOTROPIN MQ [Suspect]
     Active Substance: SOMATROPIN
     Dosage: UNK
     Dates: start: 20070607
  2. ANDROGEL [Suspect]
     Active Substance: TESTOSTERONE
     Dosage: UNK, DAILY, (2) 1 % PACKET OF 5, 1/2 PACK OF CREAM APPLIED TO LEG DAILY)
     Route: 062
     Dates: start: 2015
  3. HYDROCORTISONE. [Concomitant]
     Active Substance: HYDROCORTISONE
     Indication: INJURY
  4. LEVOTHYROXINE. [Concomitant]
     Active Substance: LEVOTHYROXINE
     Indication: THYROID DISORDER
     Dosage: 150 UG, DAILY (150 MCG, 1 IN 1 D)
     Route: 048
     Dates: start: 2000
  5. GENOTROPIN [Suspect]
     Active Substance: SOMATROPIN
     Dosage: 0.1 MG, 1X/DAY
     Dates: start: 20070814
  6. GENOTROPIN [Suspect]
     Active Substance: SOMATROPIN
     Dosage: 0.1 MG, DAILY
     Dates: start: 20120208
  7. ANDROGEL [Suspect]
     Active Substance: TESTOSTERONE
     Indication: BLOOD TESTOSTERONE DECREASED
     Dosage: UNK UNK, DAILY, (1) 1 % PACKET OF 5, 1/2 PACK OF CREAM APPLIED TO LEG DAILY)
     Route: 062
     Dates: start: 2000, end: 201508
  8. GENOTROPIN MQ [Suspect]
     Active Substance: SOMATROPIN
     Indication: HYPOPITUITARISM
     Dosage: 5 MG, UNK
     Dates: start: 20070604
  9. GENOTROPIN [Suspect]
     Active Substance: SOMATROPIN
     Dosage: 0.1 MG, DAILY
     Dates: start: 20120208
  10. HYDROCORTISONE. [Concomitant]
     Active Substance: HYDROCORTISONE
     Indication: STRESS
  11. HYDROCORTISONE. [Concomitant]
     Active Substance: HYDROCORTISONE
     Indication: PAIN
  12. GENOTROPIN [Suspect]
     Active Substance: SOMATROPIN
     Indication: HYPOPITUITARISM
     Dosage: 0.1 MG, 1X/DAY(10-5 UNITS NOS (0.1 MG, 1 D))
     Dates: start: 2000
  13. GENOTROPIN MQ [Suspect]
     Active Substance: SOMATROPIN
     Dosage: 0.1 MG, DAILY
     Dates: start: 20120208
  14. GENOTROPIN [Suspect]
     Active Substance: SOMATROPIN
     Dosage: 0.1 MG, 1X/DAY
     Dates: start: 20171130
  15. GENOTROPIN [Suspect]
     Active Substance: SOMATROPIN
     Indication: HYPOPITUITARISM
     Dosage: UNK
     Dates: start: 2000
  16. HYDROCORTISONE. [Concomitant]
     Active Substance: HYDROCORTISONE
     Indication: HYPOPITUITARISM
     Dosage: 10 MG, AS NEEDED, (TAKES DAILY AND ALSO AS NEEDED)
     Route: 048
     Dates: start: 1980
  17. TESTOSTERONE. [Concomitant]
     Active Substance: TESTOSTERONE
     Indication: HYPOPITUITARISM
     Dosage: 1/2 OF A 2.5 GRAM PACKET, DAILY
  18. LEVOTHYROXINE. [Concomitant]
     Active Substance: LEVOTHYROXINE
     Indication: HYPOPITUITARISM
  19. HYDROCORTISONE. [Concomitant]
     Active Substance: HYDROCORTISONE
     Indication: ADRENAL DISORDER

REACTIONS (25)
  - Ocular neoplasm [Unknown]
  - Brain neoplasm [Unknown]
  - Cranial nerve disorder [Unknown]
  - Headache [Unknown]
  - Lacrimation decreased [Unknown]
  - Condition aggravated [Recovered/Resolved with Sequelae]
  - Diplopia [Unknown]
  - Visual impairment [Unknown]
  - Asthenia [Recovered/Resolved]
  - Insomnia [Not Recovered/Not Resolved]
  - Product administered at inappropriate site [Unknown]
  - Pulmonary thrombosis [Unknown]
  - Pulmonary embolism [Unknown]
  - Product colour issue [Unknown]
  - Facial nerve disorder [Not Recovered/Not Resolved]
  - Dysgraphia [Unknown]
  - Paraesthesia [Not Recovered/Not Resolved]
  - Skin hypertrophy [Unknown]
  - Sepsis [Unknown]
  - Cerebrovascular accident [Recovered/Resolved with Sequelae]
  - Skin discolouration [Unknown]
  - Muscular weakness [Unknown]
  - Gait disturbance [Unknown]
  - Amnesia [Not Recovered/Not Resolved]
  - Product dose omission [Unknown]

NARRATIVE: CASE EVENT DATE: 2000
